FAERS Safety Report 13747674 (Version 2)
Quarter: 2017Q3

REPORT INFORMATION
  Report Type: Report from Study
  Country: None (occurrence: BE)
  Receive Date: 20170712
  Receipt Date: 20170727
  Transmission Date: 20171127
  Serious: Yes (Death, Hospitalization)
  Sender: FDA-Public Use
  Company Number: BE-ABBVIE-17P-013-2034706-00

PATIENT
  Sex: Male

DRUGS (5)
  1. MIRAPEXIN [Concomitant]
     Active Substance: PRAMIPEXOLE
  2. DUODOPA [Suspect]
     Active Substance: CARBIDOPA\LEVODOPA
     Indication: PARKINSON^S DISEASE
     Dosage: MD= 5 ML; CD= 2.2 ML/H DURING 16 HRS; EDA= 1 ML
     Route: 050
     Dates: start: 20150928, end: 20151002
  3. DUODOPA [Suspect]
     Active Substance: CARBIDOPA\LEVODOPA
     Dosage: DOSES CONTINUOUSLY MONITORED AND ADAPTED
     Route: 050
     Dates: start: 20151002, end: 20161018
  4. DUODOPA [Suspect]
     Active Substance: CARBIDOPA\LEVODOPA
     Dosage: MD= 3 ML; CD= 2.9 ML/H DURING 16 HRS; EDA= 2.5 ML?100ML CASSETTE
     Route: 050
     Dates: start: 20161018
  5. MIRAPEXIN [Concomitant]
     Active Substance: PRAMIPEXOLE
     Indication: PRODUCT USED FOR UNKNOWN INDICATION
     Route: 065

REACTIONS (3)
  - Cholangiolitis [Unknown]
  - Fatigue [Unknown]
  - Death [Fatal]
